FAERS Safety Report 13833553 (Version 1)
Quarter: 2017Q3

REPORT INFORMATION
  Report Type: Spontaneous
  Country: US (occurrence: US)
  Receive Date: 20170804
  Receipt Date: 20170804
  Transmission Date: 20171127
  Serious: Yes (Life-Threatening, Hospitalization, Other)
  Sender: FDA-Public Use
  Company Number: US-ASTELLAS-2017US030876

PATIENT
  Age: 68 Year
  Sex: Male

DRUGS (4)
  1. TACROLIMUS. [Suspect]
     Active Substance: TACROLIMUS
     Indication: LUNG TRANSPLANT
     Dosage: UNK, UNKNOWN FREQ.
     Route: 065
  2. PREDNISONE. [Suspect]
     Active Substance: PREDNISONE
     Indication: LUNG TRANSPLANT
     Dosage: UNK UNK, UNKNOWN FREQ.
     Route: 065
  3. TACROLIMUS. [Suspect]
     Active Substance: TACROLIMUS
     Dosage: UNK, UNKNOWN FREQ.
     Route: 065
  4. PREDNISONE. [Suspect]
     Active Substance: PREDNISONE
     Dosage: UNK UNK, UNKNOWN FREQ.
     Route: 065

REACTIONS (14)
  - Optic neuropathy [Recovered/Resolved]
  - Sinus antrostomy [Unknown]
  - Sphenoid sinus operation [Unknown]
  - Eye movement disorder [Recovering/Resolving]
  - Visual acuity reduced [Recovered/Resolved]
  - Pupillary deformity [Unknown]
  - Visual field defect [Unknown]
  - Disease progression [Unknown]
  - Ethmoid sinus surgery [Unknown]
  - Renal failure [Unknown]
  - Off label use [Unknown]
  - Graft versus host disease in lung [Unknown]
  - Sinus operation [Unknown]
  - Mucormycosis [Recovered/Resolved]
